FAERS Safety Report 12843271 (Version 1)
Quarter: 2016Q4

REPORT INFORMATION
  Report Type: Spontaneous
  Country: IT (occurrence: IT)
  Receive Date: 20161013
  Receipt Date: 20161013
  Transmission Date: 20170207
  Serious: Yes (Other)
  Sender: FDA-Public Use
  Company Number: IT-TEVA-701065ACC

PATIENT
  Sex: Female

DRUGS (1)
  1. MYOCET - 50 MG POLVERE E ADDITIVI PER CONCENTRATO PER DISPERSIONE LIPO [Suspect]
     Active Substance: DOXORUBICIN
     Indication: BREAST CANCER STAGE IV
     Dosage: 36 MG CYCLICAL
     Route: 042
     Dates: start: 20160922, end: 20160929

REACTIONS (2)
  - Erythema [Recovered/Resolved]
  - Dyspnoea [Recovered/Resolved]
